FAERS Safety Report 5063072-X (Version None)
Quarter: 2006Q3

REPORT INFORMATION
  Report Type: 
  Country: None (occurrence: None)
  Receive Date: 20060725
  Receipt Date: 20060725
  Transmission Date: 20061208
  Serious: Yes (Other)
  Sender: FDA-Public Use
  Company Number: None

PATIENT
  Age: 72 Year
  Sex: Male
  Weight: 54 kg

DRUGS (11)
  1. MEROPENEM  1 GRAM [Suspect]
     Indication: PNEUMONIA
     Dosage: 1 GRAM Q8HOURS IV DRIP
     Route: 041
     Dates: start: 20060714, end: 20060716
  2. DOCUSATE [Concomitant]
  3. LOVENOX [Concomitant]
  4. AMBIEN [Concomitant]
  5. CAPTOPRIL [Concomitant]
  6. DIGOXIN [Concomitant]
  7. NOVOLIN R [Concomitant]
  8. FAMOTIDINE [Concomitant]
  9. METHYLPREDNISOLONE [Concomitant]
  10. POTASSIUM CHLORIDE [Concomitant]
  11. DUONEB [Concomitant]

REACTIONS (2)
  - HAEMATOCRIT DECREASED [None]
  - HAEMOGLOBIN DECREASED [None]
